FAERS Safety Report 12298963 (Version 1)
Quarter: 2016Q2

REPORT INFORMATION
  Report Type: Spontaneous
  Country: US (occurrence: US)
  Receive Date: 20160425
  Receipt Date: 20160425
  Transmission Date: 20160815
  Serious: Yes (Other)
  Sender: FDA-Public Use
  Company Number: US-AUROBINDO-AUR-APL-2016-04854

PATIENT
  Age: 62 Year
  Sex: Female

DRUGS (1)
  1. BUPIVACAINE HYDROCHLORIDE. [Suspect]
     Active Substance: BUPIVACAINE HYDROCHLORIDE
     Indication: POSTOPERATIVE ANALGESIA
     Dosage: 30CC OF 0.25%

REACTIONS (4)
  - Mobility decreased [Unknown]
  - Bradypnoea [Unknown]
  - Loss of consciousness [Unknown]
  - Hypotension [Unknown]
